FAERS Safety Report 25968729 (Version 1)
Quarter: 2025Q4

REPORT INFORMATION
  Report Type: Spontaneous
  Country: EU (occurrence: EU)
  Receive Date: 20251028
  Receipt Date: 20251028
  Transmission Date: 20260118
  Serious: Yes (Other)
  Sender: PFIZER
  Company Number: None

PATIENT
  Age: 56 Year
  Sex: Male

DRUGS (3)
  1. CLINDAMYCIN HYDROCHLORIDE [Suspect]
     Active Substance: CLINDAMYCIN HYDROCHLORIDE
     Indication: Pneumonia necrotising
     Dosage: 600MG, FREQ:8 H
     Route: 048
     Dates: start: 20250708
  2. KEYTRUDA [Suspect]
     Active Substance: PEMBROLIZUMAB
     Indication: Lung adenocarcinoma
     Dosage: SCHEDULED AT 2 MG/KG EVERY 21 DAYS. FIRST DOSE.
     Route: 042
     Dates: start: 20250804, end: 20250804
  3. LEVOFLOXACIN [Suspect]
     Active Substance: LEVOFLOXACIN
     Indication: Pneumonia necrotising
     Dosage: 750 MG, 1X/DAY
     Route: 048
     Dates: start: 20250708

REACTIONS (3)
  - Toxic skin eruption [Recovered/Resolved]
  - Rash macular [Recovered/Resolved]
  - Pyrexia [Recovered/Resolved]

NARRATIVE: CASE EVENT DATE: 20250812
